FAERS Safety Report 12688424 (Version 3)
Quarter: 2016Q4

REPORT INFORMATION
  Report Type: Spontaneous
  Country: US (occurrence: US)
  Receive Date: 20160825
  Receipt Date: 20161201
  Transmission Date: 20170207
  Serious: Yes (Other)
  Sender: FDA-Public Use
  Company Number: US-ACTELION-A-US2016-141007

PATIENT
  Age: 69 Year
  Sex: Female

DRUGS (11)
  1. DIGOXIN. [Concomitant]
     Active Substance: DIGOXIN
     Dosage: 125 MG, UNK
     Dates: start: 20160621
  2. PANTOPRAZOLE [Concomitant]
     Active Substance: PANTOPRAZOLE SODIUM
  3. LOSARTAN. [Concomitant]
     Active Substance: LOSARTAN
  4. OPSUMIT [Suspect]
     Active Substance: MACITENTAN
     Indication: PULMONARY ARTERIAL HYPERTENSION
     Dosage: 10 MG, UNK
     Route: 048
     Dates: start: 20160421
  5. GLIMEPIRIDE. [Concomitant]
     Active Substance: GLIMEPIRIDE
  6. DILTIAZEM. [Concomitant]
     Active Substance: DILTIAZEM
     Dosage: 120 MG, UNK
  7. GABAPENTIN. [Concomitant]
     Active Substance: GABAPENTIN
  8. METOLAZONE. [Concomitant]
     Active Substance: METOLAZONE
     Dosage: 25 MG, UNK
  9. ASPIRIN. [Concomitant]
     Active Substance: ASPIRIN
  10. TORSEMIDE. [Concomitant]
     Active Substance: TORSEMIDE
     Dosage: 40 MG, BID
  11. POTASSIUM [Concomitant]
     Active Substance: POTASSIUM

REACTIONS (4)
  - Pain [Not Recovered/Not Resolved]
  - Intra-abdominal fluid collection [Not Recovered/Not Resolved]
  - Abdominal pain [Not Recovered/Not Resolved]
  - Right ventricular failure [Recovering/Resolving]

NARRATIVE: CASE EVENT DATE: 201608
